FAERS Safety Report 20237405 (Version 1)
Quarter: 2021Q4

REPORT INFORMATION
  Report Type: Spontaneous
  Country: PL (occurrence: PL)
  Receive Date: 20211228
  Receipt Date: 20211228
  Transmission Date: 20220303
  Serious: Yes (Hospitalization)
  Sender: FDA-Public Use
  Company Number: PL-GSKJP-CHPA2009PL23717

PATIENT
  Age: 21 Year
  Sex: Male

DRUGS (15)
  1. IBUPROFEN [Suspect]
     Active Substance: IBUPROFEN
     Indication: Pyrexia
     Dosage: UNK
     Route: 065
  2. IBUPROFEN [Suspect]
     Active Substance: IBUPROFEN
     Indication: Pain
  3. IBUPROFEN [Suspect]
     Active Substance: IBUPROFEN
     Indication: Fatigue
  4. IBUPROFEN [Suspect]
     Active Substance: IBUPROFEN
     Indication: Still^s disease
  5. DICLOFENAC [Suspect]
     Active Substance: DICLOFENAC
     Indication: Pyrexia
     Dosage: UNK
     Route: 065
  6. DICLOFENAC [Suspect]
     Active Substance: DICLOFENAC
     Indication: Pain
  7. DICLOFENAC [Suspect]
     Active Substance: DICLOFENAC
     Indication: Fatigue
  8. DICLOFENAC [Suspect]
     Active Substance: DICLOFENAC
     Indication: Still^s disease
  9. METAMIZOLE [Suspect]
     Active Substance: METAMIZOLE
     Indication: Pain
     Dosage: UNK
     Route: 065
  10. METAMIZOLE [Suspect]
     Active Substance: METAMIZOLE
     Indication: Fatigue
  11. METAMIZOLE [Suspect]
     Active Substance: METAMIZOLE
     Indication: Still^s disease
  12. METAMIZOLE [Suspect]
     Active Substance: METAMIZOLE
     Indication: Pyrexia
  13. KETOPROFEN [Suspect]
     Active Substance: KETOPROFEN
     Indication: Still^s disease
     Dosage: UNK
     Route: 065
  14. NYSTATIN [Concomitant]
     Active Substance: NYSTATIN
     Indication: Infection
     Dosage: UNK
     Route: 065
  15. CIPROFLOXACIN [Concomitant]
     Active Substance: CIPROFLOXACIN
     Indication: Infection
     Dosage: UNK
     Route: 065

REACTIONS (2)
  - Drug ineffective [Unknown]
  - Drug ineffective for unapproved indication [Unknown]
